FAERS Safety Report 6184455-0 (Version None)
Quarter: 2009Q2

REPORT INFORMATION
  Report Type: 
  Country: None (occurrence: None)
  Receive Date: 20090507
  Receipt Date: 20090507
  Transmission Date: 20091009
  Serious: No
  Sender: FDA-Public Use
  Company Number: None

PATIENT
  Sex: Female

DRUGS (2)
  1. LAMOTRIGINE [Suspect]
     Indication: EPILEPSY
     Dosage: 200 MG 2 BID
     Dates: start: 20081101, end: 20090201
  2. TOPAMAX [Concomitant]

REACTIONS (4)
  - DIPLOPIA [None]
  - DIZZINESS [None]
  - PRODUCT SUBSTITUTION ISSUE [None]
  - VISION BLURRED [None]
